FAERS Safety Report 10271626 (Version 2)
Quarter: 2015Q2

REPORT INFORMATION
  Report Type: Spontaneous
  Country: BE (occurrence: BE)
  Receive Date: 20140701
  Receipt Date: 20150624
  Transmission Date: 20150821
  Serious: Yes (Death, Hospitalization, Other)
  Sender: FDA-Public Use
  Company Number: BE-GILEAD-2014-0107073

PATIENT
  Age: 37 Year
  Sex: Male

DRUGS (3)
  1. TENOFOVIR DISOPROXIL FUMARATE [Suspect]
     Active Substance: TENOFOVIR DISOPROXIL FUMARATE
     Indication: HIV INFECTION
     Dosage: UNK
     Route: 065
     Dates: start: 200807
  2. LAMIVUDINE. [Suspect]
     Active Substance: LAMIVUDINE
     Indication: HIV INFECTION
     Route: 065
  3. LOPINAVIR AND RITONAVIR [Suspect]
     Active Substance: LOPINAVIR\RITONAVIR
     Indication: HIV INFECTION

REACTIONS (13)
  - Pyrexia [Unknown]
  - Headache [Unknown]
  - Cryptococcosis [Unknown]
  - Epilepsy [Unknown]
  - Mycobacterium avium complex infection [Unknown]
  - Blood lactate dehydrogenase increased [Unknown]
  - Weight decreased [Unknown]
  - Status epilepticus [Fatal]
  - Skin lesion [Unknown]
  - Blood creatine phosphokinase increased [Unknown]
  - Immune reconstitution inflammatory syndrome [Fatal]
  - Intracranial pressure increased [Unknown]
  - Brain oedema [Fatal]
